FAERS Safety Report 7320959-2 (Version None)
Quarter: 2011Q1

REPORT INFORMATION
  Report Type: 
  Country: None (occurrence: None)
  Receive Date: 20110228
  Receipt Date: 20110218
  Transmission Date: 20110831
  Serious: Yes (Other)
  Sender: FDA-Public Use
  Company Number: GB-JNJFOC-20110201722

PATIENT
  Sex: Female

DRUGS (1)
  1. TOPAMAX [Suspect]
     Indication: EPILEPSY
     Route: 048

REACTIONS (9)
  - EYE HAEMORRHAGE [None]
  - PARAESTHESIA [None]
  - FOREIGN BODY SENSATION IN EYES [None]
  - FACIAL PAIN [None]
  - EYE PAIN [None]
  - VISION BLURRED [None]
  - PAIN IN EXTREMITY [None]
  - HYPOAESTHESIA [None]
  - DRUG INEFFECTIVE [None]
